FAERS Safety Report 12178035 (Version 1)
Quarter: 2016Q1

REPORT INFORMATION
  Report Type: Spontaneous
  Country: US (occurrence: None)
  Receive Date: 20160314
  Receipt Date: 20160314
  Transmission Date: 20160526
  Serious: Yes (Other)
  Sender: FDA-Public Use
  Company Number: None

PATIENT
  Age: 78 Year
  Sex: Male
  Weight: 78.02 kg

DRUGS (6)
  1. RIFAMPIN 150 MG VERSAPHARM [Suspect]
     Active Substance: RIFAMPIN
     Indication: SMALL INTESTINAL BACTERIAL OVERGROWTH
     Route: 048
  2. VERAPAMIL [Concomitant]
     Active Substance: VERAPAMIL HYDROCHLORIDE
  3. LANTUS SOLOSTAR [Concomitant]
     Active Substance: INSULIN GLARGINE
  4. VALSARTAN. [Concomitant]
     Active Substance: VALSARTAN
  5. METFORMIN [Concomitant]
     Active Substance: METFORMIN HYDROCHLORIDE
  6. CHLORTHALIDONE. [Concomitant]
     Active Substance: CHLORTHALIDONE

REACTIONS (4)
  - Chromaturia [None]
  - Middle insomnia [None]
  - Atrial tachycardia [None]
  - Polyuria [None]

NARRATIVE: CASE EVENT DATE: 20160310
